FAERS Safety Report 8219815-7 (Version None)
Quarter: 2012Q1

REPORT INFORMATION
  Report Type: 
  Country: None (occurrence: None)
  Receive Date: 20120319
  Receipt Date: 20120314
  Transmission Date: 20120608
  Serious: Yes (Death, Hospitalization)
  Sender: FDA-Public Use
  Company Number: US-PFIZER INC-2012068081

PATIENT
  Sex: Female

DRUGS (2)
  1. VFEND [Suspect]
     Indication: LYMPHOMA
     Dosage: 200 MG, 2X/DAY
     Dates: start: 20111014
  2. VFEND [Suspect]
     Indication: FUNGAL INFECTION

REACTIONS (3)
  - LYMPHOMA [None]
  - DISEASE PROGRESSION [None]
  - GASTROINTESTINAL HAEMORRHAGE [None]
